FAERS Safety Report 9133783 (Version 1)
Quarter: 2013Q1

REPORT INFORMATION
  Report Type: Spontaneous
  Country: GB (occurrence: GB)
  Receive Date: 20130303
  Receipt Date: 20130303
  Transmission Date: 20140127
  Serious: Yes (Other)
  Sender: FDA-Public Use
  Company Number: GB-TEVA-388187ISR

PATIENT
  Age: 58 Year
  Sex: Female
  Weight: 95.7 kg

DRUGS (3)
  1. SALBUTAMOL [Suspect]
     Indication: ASTHMA
     Dosage: TWO PUFFS WHEN REQUIRED
     Route: 055
     Dates: start: 20130205, end: 20130206
  2. AMLODIPINE [Concomitant]
     Route: 048
  3. SERETIDE [Concomitant]

REACTIONS (5)
  - Nausea [Recovering/Resolving]
  - Vomiting [Recovering/Resolving]
  - Product quality issue [Unknown]
  - Retching [Recovering/Resolving]
  - Product taste abnormal [Unknown]
